FAERS Safety Report 17077281 (Version 3)
Quarter: 2020Q1

REPORT INFORMATION
  Report Type: Spontaneous
  Country: US (occurrence: US)
  Receive Date: 20191126
  Receipt Date: 20200228
  Transmission Date: 20200409
  Serious: No
  Sender: FDA-Public Use
  Company Number: US-PFIZER INC-2019193932

PATIENT
  Age: 61 Year
  Sex: Male

DRUGS (2)
  1. CELEBREX [Suspect]
     Active Substance: CELECOXIB
     Indication: SCIATICA
  2. CELEBREX [Suspect]
     Active Substance: CELECOXIB
     Indication: BACK PAIN
     Dosage: 200 MG, 2X/DAY
     Route: 048

REACTIONS (6)
  - Disturbance in attention [Unknown]
  - Pain [Unknown]
  - Product use in unapproved indication [Unknown]
  - Rotator cuff syndrome [Unknown]
  - Arthritis [Unknown]
  - Off label use [Unknown]
